FAERS Safety Report 23097144 (Version 1)
Quarter: 2023Q4

REPORT INFORMATION
  Report Type: Spontaneous
  Country: IT (occurrence: IT)
  Receive Date: 20231023
  Receipt Date: 20231023
  Transmission Date: 20240110
  Serious: Yes (Other)
  Sender: FDA-Public Use
  Company Number: IT-MINISAL02-934294

PATIENT
  Age: 61 Year
  Sex: Male
  Weight: 71 kg

DRUGS (2)
  1. GEMCITABINE [Suspect]
     Active Substance: GEMCITABINE
     Indication: Adenocarcinoma pancreas
     Dosage: 1830 MILLIGRAM, UNK
     Route: 040
     Dates: start: 20220228, end: 20220228
  2. ABRAXANE [Suspect]
     Active Substance: PACLITAXEL
     Indication: Adenocarcinoma pancreas
     Dosage: 228.75 MILLIGRAM, UNK
     Route: 040
     Dates: start: 20220228, end: 20220228

REACTIONS (3)
  - Thrombocytopenia [Recovered/Resolved]
  - Hyperkalaemia [Recovered/Resolved]
  - Nail disorder [Recovering/Resolving]

NARRATIVE: CASE EVENT DATE: 20220303
